FAERS Safety Report 7588178-2 (Version None)
Quarter: 2011Q3

REPORT INFORMATION
  Report Type: 
  Country: None (occurrence: None)
  Receive Date: 20110705
  Receipt Date: 20110617
  Transmission Date: 20111222
  Serious: Yes (Other)
  Sender: FDA-Public Use
  Company Number: US-BAYER-201042081NA

PATIENT
  Age: 18 Year
  Sex: Female
  Weight: 68 kg

DRUGS (9)
  1. YAZ [Suspect]
     Indication: DYSMENORRHOEA
  2. YASMIN [Suspect]
     Indication: DYSMENORRHOEA
     Dosage: QD
     Route: 048
     Dates: start: 20051001, end: 20070601
  3. YASMIN [Suspect]
  4. YAZ [Suspect]
     Indication: CONTRACEPTION
  5. CALCIUM PLUS [CALCIUM] [Concomitant]
     Dosage: UNK UNK, QD
     Route: 048
  6. YAZ [Suspect]
     Indication: PREMENSTRUAL SYNDROME
     Dosage: QD
     Route: 048
     Dates: start: 20050401, end: 20050701
  7. YAZ [Suspect]
  8. YASMIN [Suspect]
     Indication: CONTRACEPTION
  9. YASMIN [Suspect]
     Indication: PREMENSTRUAL SYNDROME

REACTIONS (4)
  - CHOLECYSTITIS CHRONIC [None]
  - GALLBLADDER INJURY [None]
  - PAIN [None]
  - CHOLECYSTITIS [None]
